FAERS Safety Report 9362921 (Version 3)
Quarter: 2013Q3

REPORT INFORMATION
  Report Type: Spontaneous
  Country: IT (occurrence: IT)
  Receive Date: 20130624
  Receipt Date: 20130731
  Transmission Date: 20140515
  Serious: Yes (Life-Threatening, Hospitalization)
  Sender: FDA-Public Use
  Company Number: IT-ROCHE-1238306

PATIENT
  Age: 46 Year
  Sex: Male

DRUGS (3)
  1. DIAZEPAM [Suspect]
     Indication: PRODUCT USED FOR UNKNOWN INDICATION
     Route: 065
     Dates: start: 20130608, end: 20130608
  2. METADON [Suspect]
     Indication: PRODUCT USED FOR UNKNOWN INDICATION
     Route: 065
     Dates: start: 20130608
  3. NEBIVOLOL [Concomitant]
     Route: 065

REACTIONS (6)
  - Drug abuse [Unknown]
  - Rales [Unknown]
  - Tachycardia [Unknown]
  - Sopor [Unknown]
  - Intentional self-injury [Unknown]
  - Vomiting [Unknown]
